FAERS Safety Report 21338466 (Version 2)
Quarter: 2022Q3

REPORT INFORMATION
  Report Type: Spontaneous
  Country: US (occurrence: US)
  Receive Date: 20220915
  Receipt Date: 20220923
  Transmission Date: 20221026
  Serious: Yes (Other)
  Sender: FDA-Public Use
  Company Number: US-ALLERGAN-2230129US

PATIENT
  Sex: Female

DRUGS (1)
  1. QULIPTA [Suspect]
     Active Substance: ATOGEPANT
     Indication: Product used for unknown indication

REACTIONS (8)
  - Thyroid neoplasm [Unknown]
  - Multiple sclerosis [Recovered/Resolved]
  - Thyroid disorder [Not Recovered/Not Resolved]
  - Hypersensitivity [Unknown]
  - Myositis [Unknown]
  - Sinusitis [Unknown]
  - Migraine [Recovering/Resolving]
  - Bell^s palsy [Unknown]
